FAERS Safety Report 8192589-4 (Version None)
Quarter: 2012Q1

REPORT INFORMATION
  Report Type: 
  Country: None (occurrence: None)
  Receive Date: 20120221
  Receipt Date: 20111228
  Transmission Date: 20120608
  Serious: No
  Sender: FDA-Public Use
  Company Number: 1000026603

PATIENT
  Age: 55 Year
  Sex: Male

DRUGS (5)
  1. COUMADIN [Concomitant]
  2. LISINOPRIL [Concomitant]
  3. SILENOR (DOXEPIN HYDROCHLORIDE) (DOXEPIN HYDROCHLORIDE) [Concomitant]
  4. VIIBRYD [Suspect]
     Indication: DEPRESSION
     Dosage: 10 MG (10 MG, 1 IN 1 D), ORAL
     Route: 048
     Dates: start: 20111228
  5. NEXIUM [Concomitant]

REACTIONS (1)
  - DIARRHOEA [None]
